FAERS Safety Report 5214874-8 (Version None)
Quarter: 2007Q1

REPORT INFORMATION
  Report Type: 
  Country: None (occurrence: None)
  Receive Date: 20070122
  Receipt Date: 20070122
  Transmission Date: 20070707
  Serious: Yes (Other)
  Sender: FDA-Public Use
  Company Number: None

PATIENT
  Age: 46 Year
  Sex: Male

DRUGS (6)
  1. MAGNEVIST [Suspect]
     Indication: DIABETIC FOOT
     Dosage: 20 ML TWICE IV BOLUS
     Route: 040
     Dates: start: 20021220, end: 20021220
  2. MAGNEVIST [Suspect]
     Indication: FOOT AMPUTATION
     Dosage: 20 ML TWICE IV BOLUS
     Route: 040
     Dates: start: 20021220, end: 20021220
  3. MAGNEVIST [Suspect]
     Indication: PURULENCE
     Dosage: 20 ML TWICE IV BOLUS
     Route: 040
     Dates: start: 20021220, end: 20021220
  4. MAGNEVIST [Suspect]
     Indication: DIABETIC FOOT
     Dosage: 20 ML TWICE IV BOLUS
     Route: 040
     Dates: start: 20030513, end: 20030513
  5. MAGNEVIST [Suspect]
     Indication: FOOT AMPUTATION
     Dosage: 20 ML TWICE IV BOLUS
     Route: 040
     Dates: start: 20030513, end: 20030513
  6. MAGNEVIST [Suspect]
     Indication: PURULENCE
     Dosage: 20 ML TWICE IV BOLUS
     Route: 040
     Dates: start: 20030513, end: 20030513

REACTIONS (1)
  - NEPHROGENIC FIBROSING DERMOPATHY [None]
